FAERS Safety Report 13646847 (Version 1)
Quarter: 2017Q2

REPORT INFORMATION
  Report Type: Spontaneous
  Country: CN (occurrence: CN)
  Receive Date: 20170613
  Receipt Date: 20170613
  Transmission Date: 20170830
  Serious: Yes (Other)
  Sender: FDA-Public Use
  Company Number: CN-ASTRAZENECA-2017SE61275

PATIENT
  Sex: Female
  Weight: 56 kg

DRUGS (1)
  1. GOSERELIN ACETATE [Suspect]
     Active Substance: GOSERELIN ACETATE
     Indication: BREAST CANCER
     Route: 058
     Dates: start: 20170203, end: 20170203

REACTIONS (1)
  - Neutrophil count decreased [Recovering/Resolving]
